FAERS Safety Report 6920618-1 (Version None)
Quarter: 2010Q3

REPORT INFORMATION
  Report Type: 
  Country: None (occurrence: None)
  Receive Date: 20100812
  Receipt Date: 20100805
  Transmission Date: 20110219
  Serious: Yes (Death, Hospitalization)
  Sender: FDA-Public Use
  Company Number: KR-BRISTOL-MYERS SQUIBB COMPANY-15222730

PATIENT
  Age: 51 Year
  Sex: Male

DRUGS (3)
  1. CISPLATIN [Suspect]
     Indication: HEPATIC NEOPLASM MALIGNANT
  2. EPIRUBICIN [Suspect]
     Indication: HEPATIC NEOPLASM MALIGNANT
  3. RADIOTHERAPY [Suspect]
     Indication: HEPATIC NEOPLASM MALIGNANT
     Dosage: 1 DF = TOTAL DOSE OF 45 GY IN 10 FRACTIONS

REACTIONS (2)
  - HEPATIC FAILURE [None]
  - HEPATITIS B [None]
